FAERS Safety Report 4855152-6 (Version None)
Quarter: 2005Q4

REPORT INFORMATION
  Report Type: 
  Country: None (occurrence: None)
  Receive Date: 20051125
  Receipt Date: 20041115
  Transmission Date: 20060501
  Serious: Yes (Hospitalization)
  Sender: FDA-Public Use
  Company Number: US-JNJFOC-20040500177

PATIENT
  Age: 60 Year
  Sex: Male
  Weight: 117.028 kg

DRUGS (10)
  1. LEVAQUIN [Suspect]
     Indication: SINUSITIS
     Dosage: 500 MG, 1 IN 1 DAY, ORAL
     Route: 048
     Dates: start: 20040211, end: 20040217
  2. COREG [Concomitant]
  3. ALTACE [Concomitant]
  4. LEVOTHYROXINE SODIUM [Concomitant]
  5. NAPROSYN [Concomitant]
  6. NORVASE (AMLODIPINE BESILATE) [Concomitant]
  7. POTASSIUM [Concomitant]
  8. AUGMENTIN XR (CLAVULIN) [Concomitant]
  9. NASONEX [Concomitant]
  10. MUCINEX (GUAIFENESIN) [Concomitant]

REACTIONS (2)
  - ANAPHYLACTIC SHOCK [None]
  - HYPERTENSION [None]
